FAERS Safety Report 15899586 (Version 2)
Quarter: 2020Q2

REPORT INFORMATION
  Report Type: Spontaneous
  Country: US (occurrence: US)
  Receive Date: 20190201
  Receipt Date: 20200528
  Transmission Date: 20200713
  Serious: Yes (Other)
  Sender: FDA-Public Use
  Company Number: US-PFIZER INC-2019031406

PATIENT
  Sex: Female

DRUGS (3)
  1. BRIVIACT [Concomitant]
     Active Substance: BRIVARACETAM
     Dosage: UNK
  2. GABAPENTIN. [Concomitant]
     Active Substance: GABAPENTIN
     Dosage: UNK
  3. DILANTIN [Suspect]
     Active Substance: PHENYTOIN
     Dosage: UNK

REACTIONS (5)
  - Seizure [Unknown]
  - Breath odour [Unknown]
  - Drug level increased [Unknown]
  - Gastrointestinal disorder [Unknown]
  - Stress [Unknown]
